FAERS Safety Report 7388785-6 (Version None)
Quarter: 2011Q1

REPORT INFORMATION
  Report Type: 
  Country: None (occurrence: None)
  Receive Date: 20110330
  Receipt Date: 20110330
  Transmission Date: 20110831
  Serious: Yes (Hospitalization, Other)
  Sender: FDA-Public Use
  Company Number: None

PATIENT
  Age: 45 Year
  Sex: Female
  Weight: 70.3075 kg

DRUGS (1)
  1. TRIAD ALLCHOL WIPES [Suspect]
     Indication: MEDICAL DEVICE IMPLANTATION
     Dates: start: 20101222, end: 20110110

REACTIONS (3)
  - LOCALISED INFECTION [None]
  - PRODUCT QUALITY ISSUE [None]
  - MALAISE [None]
